FAERS Safety Report 6915657-0 (Version None)
Quarter: 2010Q3

REPORT INFORMATION
  Report Type: 
  Country: None (occurrence: None)
  Receive Date: 20100810
  Receipt Date: 20100729
  Transmission Date: 20110219
  Serious: Yes (Hospitalization)
  Sender: FDA-Public Use
  Company Number: JP-JNJFOC-20100608543

PATIENT
  Age: 32 Year
  Sex: Female
  Weight: 40 kg

DRUGS (10)
  1. REMICADE [Suspect]
     Indication: BEHCET'S SYNDROME
     Route: 042
  2. REMICADE [Suspect]
     Dosage: PATIENT HAD A TOTAL OF 3 INFUSIONS
     Route: 042
  3. REMICADE [Suspect]
     Route: 042
  4. COLCHICINE [Concomitant]
     Route: 048
  5. RADEN [Concomitant]
     Route: 048
  6. DEPAKENE [Concomitant]
     Route: 048
  7. SOLU-CORTEF [Concomitant]
  8. NAXEN [Concomitant]
     Route: 048
  9. EPADEL [Concomitant]
     Route: 048
  10. CORTICOSTEROIDS [Concomitant]

REACTIONS (5)
  - ANAPHYLACTIC REACTION [None]
  - BLOOD PRESSURE DECREASED [None]
  - INFUSION RELATED REACTION [None]
  - RASH [None]
  - VOMITING [None]
